FAERS Safety Report 8639598 (Version 2)
Quarter: 2013Q1

REPORT INFORMATION
  Report Type: Spontaneous
  Country: JP (occurrence: JP)
  Receive Date: 20120627
  Receipt Date: 20130122
  Transmission Date: 20140127
  Serious: Yes (Other)
  Sender: FDA-Public Use
  Company Number: JP-ROCHE-1080452

PATIENT
  Age: 70 Year
  Sex: Female
  Weight: 59 kg

DRUGS (11)
  1. XOLAIR [Suspect]
     Indication: ASTHMA
     Route: 058
     Dates: start: 20110413, end: 20110803
  2. ADOAIR [Concomitant]
     Route: 065
     Dates: start: 20100213
  3. ONON [Concomitant]
     Route: 065
     Dates: start: 20101110
  4. THEOPHYLLINE [Concomitant]
     Route: 065
     Dates: start: 20100818
  5. RANITIDINE [Concomitant]
     Route: 065
     Dates: start: 20061220
  6. BAYASPIRIN [Concomitant]
     Route: 065
     Dates: start: 20061220
  7. ALDACTONE [Concomitant]
     Route: 065
     Dates: start: 20061220
  8. BEPRICOR [Concomitant]
     Route: 065
     Dates: start: 20061220
  9. ASCATE [Concomitant]
     Route: 065
     Dates: start: 20100721
  10. MYSLEE [Concomitant]
     Route: 065
     Dates: start: 20070117
  11. LEVOGLUTAMIDE/SODIUM GUALENATE [Concomitant]
     Route: 065
     Dates: start: 20100721

REACTIONS (2)
  - Suicidal ideation [Recovered/Resolved]
  - Depressive symptom [Recovered/Resolved]
